FAERS Safety Report 16927021 (Version 1)
Quarter: 2019Q4

REPORT INFORMATION
  Report Type: Spontaneous
  Country: VN (occurrence: VN)
  Receive Date: 20191016
  Receipt Date: 20191016
  Transmission Date: 20200122
  Serious: Yes (Hospitalization)
  Sender: FDA-Public Use
  Company Number: VN-BAYER-2019-186370

PATIENT
  Age: 67 Year
  Sex: Female

DRUGS (1)
  1. ULTRAVIST [Suspect]
     Active Substance: IOPROMIDE
     Indication: ANGIOCARDIOGRAM
     Dosage: UNK
     Dates: start: 20181005, end: 20181005

REACTIONS (7)
  - Pulse absent [Recovered/Resolved]
  - Urinary incontinence [Recovered/Resolved]
  - Hyperhidrosis [Recovered/Resolved]
  - Blood pressure immeasurable [Recovered/Resolved]
  - Cyanosis [Recovered/Resolved]
  - Vomiting [Recovered/Resolved]
  - Mucosal discolouration [Recovered/Resolved]

NARRATIVE: CASE EVENT DATE: 20181005
